FAERS Safety Report 17908589 (Version 3)
Quarter: 2020Q3

REPORT INFORMATION
  Report Type: Spontaneous
  Country: US (occurrence: US)
  Receive Date: 20200617
  Receipt Date: 20200710
  Transmission Date: 20201103
  Serious: Yes (Other)
  Sender: FDA-Public Use
  Company Number: US-PFIZER INC-2020234526

PATIENT
  Age: 36 Year
  Sex: Male

DRUGS (1)
  1. GABAPENTIN. [Suspect]
     Active Substance: GABAPENTIN
     Indication: ALCOHOLIC SEIZURE
     Dosage: 600 MG, 4X/DAY(GABAPENTIN 600 MG EVERY 6 HOURS FOR 3 DAYS)

REACTIONS (5)
  - Drug-induced liver injury [Unknown]
  - Alanine aminotransferase increased [Unknown]
  - Off label use [Unknown]
  - Product use in unapproved indication [Unknown]
  - Aspartate aminotransferase increased [Unknown]
